FAERS Safety Report 12786285 (Version 1)
Quarter: 2016Q3

REPORT INFORMATION
  Report Type: Spontaneous
  Country: HU (occurrence: HU)
  Receive Date: 20160927
  Receipt Date: 20160927
  Transmission Date: 20161109
  Serious: Yes (Hospitalization)
  Sender: FDA-Public Use
  Company Number: HU-IMPAX LABORATORIES, INC-2016-IPXL-01045

PATIENT
  Age: 49 Year
  Sex: Male

DRUGS (4)
  1. CARBIDOPA-LEVODOPA ER [Suspect]
     Active Substance: CARBIDOPA\LEVODOPA
     Dosage: 2000 MG, EVEN 2 CASETTES DAILY
     Route: 048
     Dates: start: 2015
  2. CARBIDOPA-LEVODOPA ER [Suspect]
     Active Substance: CARBIDOPA\LEVODOPA
     Indication: PARKINSON^S DISEASE
     Dosage: 2500 - 3000 MG IN RANDOM WAY
     Route: 048
     Dates: start: 2013
  3. CARBIDOPA-LEVODOPA ER [Suspect]
     Active Substance: CARBIDOPA\LEVODOPA
     Dosage: 2000 MG CASETTES AND 2000 MG ORAL
     Route: 048
  4. CARBIDOPA-LEVODOPA ER [Suspect]
     Active Substance: CARBIDOPA\LEVODOPA
     Dosage: 2000 MG, CASETTE/DAILY
     Route: 048
     Dates: start: 2013

REACTIONS (4)
  - Disorientation [Recovered/Resolved]
  - Hallucination [Recovered/Resolved]
  - Dopamine dysregulation syndrome [Recovered/Resolved]
  - Dyskinesia [Recovered/Resolved]

NARRATIVE: CASE EVENT DATE: 2008
